FAERS Safety Report 16071566 (Version 2)
Quarter: 2019Q2

REPORT INFORMATION
  Report Type: Report from Study
  Country: US (occurrence: US)
  Receive Date: 20190314
  Receipt Date: 20190612
  Transmission Date: 20190711
  Serious: Yes (Other)
  Sender: FDA-Public Use
  Company Number: US-ROCHE-2278863

PATIENT
  Sex: Male

DRUGS (2)
  1. INSULIN [Concomitant]
     Active Substance: INSULIN NOS
     Route: 058
  2. ESBRIET [Suspect]
     Active Substance: PIRFENIDONE
     Indication: IDIOPATHIC PULMONARY FIBROSIS
     Route: 048

REACTIONS (7)
  - Diabetes mellitus inadequate control [Unknown]
  - Hiccups [Recovered/Resolved]
  - Abdominal pain upper [Unknown]
  - Weight increased [Unknown]
  - Fatigue [Not Recovered/Not Resolved]
  - Abdominal distension [Recovered/Resolved]
  - Eructation [Recovered/Resolved]
